FAERS Safety Report 6862768-4 (Version None)
Quarter: 2010Q3

REPORT INFORMATION
  Report Type: 
  Country: None (occurrence: None)
  Receive Date: 20100721
  Receipt Date: 20100708
  Transmission Date: 20110219
  Serious: Yes (Hospitalization)
  Sender: FDA-Public Use
  Company Number: DE-ROCHE-715900

PATIENT
  Sex: Female
  Weight: 76 kg

DRUGS (14)
  1. METHOXY POLYETHYLENE GLYCOL-EPOETIN BETA [Suspect]
     Route: 058
  2. CELLCEPT [Concomitant]
     Indication: IMMUNOSUPPRESSION
     Route: 048
  3. ALDACTONE [Concomitant]
     Indication: HYPERTENSION
     Route: 048
  4. DIOVAN [Concomitant]
     Indication: HYPERTENSION
     Route: 048
  5. DOXAZOSIN [Concomitant]
     Indication: HYPERTENSION
     Route: 048
  6. TOREM [Concomitant]
     Indication: HYPERTENSION
     Route: 048
  7. NEBIVOLOL HCL [Concomitant]
     Indication: HYPERTENSION
     Route: 048
  8. NEPHROTRANS [Concomitant]
     Indication: METABOLIC ACIDOSIS
     Route: 048
  9. SANDIMMUNE [Concomitant]
     Indication: IMMUNOSUPPRESSION
     Route: 048
  10. DECORTIN H [Concomitant]
     Indication: IMMUNOSUPPRESSION
     Route: 048
  11. PRAVASTATIN [Concomitant]
     Indication: LIPIDS INCREASED
     Route: 048
  12. IDEOS [Concomitant]
     Indication: VITAMIN D DEFICIENCY
     Route: 048
  13. PANTOZOL [Concomitant]
     Indication: PROPHYLAXIS
     Route: 048
  14. FERRO SANOL [Concomitant]
     Route: 048

REACTIONS (1)
  - DEEP VEIN THROMBOSIS [None]
